FAERS Safety Report 4733689-8 (Version None)
Quarter: 2005Q3

REPORT INFORMATION
  Report Type: 
  Country: None (occurrence: None)
  Receive Date: 20050729
  Receipt Date: 20050715
  Transmission Date: 20060218
  Serious: Yes (Other)
  Sender: FDA-Public Use
  Company Number: MAG-2005-0000377

PATIENT
  Age: 66 Year
  Sex: Male

DRUGS (8)
  1. OXYCODONE HCL [Suspect]
     Indication: CANCER PAIN
     Dosage: SEE IMAGE
     Route: 048
     Dates: start: 20040820, end: 20041207
  2. OXYCODONE HCL [Suspect]
     Indication: CANCER PAIN
     Dosage: SEE IMAGE
     Route: 048
     Dates: start: 20041208, end: 20041210
  3. OXYCODONE HCL [Suspect]
     Indication: CANCER PAIN
     Dosage: SEE IMAGE
     Route: 048
     Dates: start: 20041211, end: 20050104
  4. ALFAROL (ALFACALCIDOL) [Concomitant]
  5. FAMOTIDINE [Concomitant]
  6. IRESSA [Concomitant]
  7. MORPHINE [Concomitant]
  8. NOVAMIN (PROCHLORPERAZINE) [Concomitant]

REACTIONS (3)
  - ILEUS PARALYTIC [None]
  - LUNG ADENOCARCINOMA [None]
  - MALIGNANT NEOPLASM PROGRESSION [None]
